FAERS Safety Report 9833383 (Version 4)
Quarter: 2014Q2

REPORT INFORMATION
  Report Type: Report from Study
  Country: GB (occurrence: GB)
  Receive Date: 20140121
  Receipt Date: 20140604
  Transmission Date: 20141212
  Serious: Yes (Other)
  Sender: FDA-Public Use
  Company Number: GB-US-EMD SERONO, INC.-7262335

PATIENT
  Sex: Male

DRUGS (1)
  1. REBIF [Suspect]
     Indication: MULTIPLE SCLEROSIS
     Route: 058
     Dates: start: 20131021

REACTIONS (8)
  - Haemorrhage [Unknown]
  - Tremor [Unknown]
  - Arthralgia [Unknown]
  - Rash generalised [Unknown]
  - Urticaria [Unknown]
  - Platelet count decreased [Unknown]
  - Influenza like illness [Unknown]
  - Injection site reaction [Unknown]
